FAERS Safety Report 11172114 (Version 4)
Quarter: 2015Q2

REPORT INFORMATION
  Report Type: Spontaneous
  Country: JP (occurrence: JP)
  Receive Date: 20150608
  Receipt Date: 20150624
  Transmission Date: 20150821
  Serious: Yes (Other)
  Sender: FDA-Public Use
  Company Number: JP-UCBSA-2015017651

PATIENT
  Age: 1 Day
  Sex: Female

DRUGS (1)
  1. KEPPRA [Suspect]
     Active Substance: LEVETIRACETAM
     Indication: PRODUCT USED FOR UNKNOWN INDICATION
     Dosage: UNK
     Route: 064

REACTIONS (2)
  - Foetal exposure during pregnancy [Unknown]
  - Erythema toxicum neonatorum [Recovered/Resolved]

NARRATIVE: CASE EVENT DATE: 20150528
